FAERS Safety Report 4277894-6 (Version None)
Quarter: 2004Q1

REPORT INFORMATION
  Report Type: 
  Country: None (occurrence: None)
  Receive Date: 20040122
  Receipt Date: 20040122
  Transmission Date: 20041129
  Serious: Yes (Death, Life-Threatening, Hospitalization)
  Sender: FDA-Public Use
  Company Number: None

PATIENT
  Age: 11 Year
  Sex: Female
  Weight: 30.5 kg

DRUGS (2)
  1. TOPAMAX [Suspect]
     Indication: CONVULSION
     Dosage: SEE IMAGE
     Route: 048
  2. DEPAKOTE [Concomitant]

REACTIONS (8)
  - ANHIDROSIS [None]
  - CONDITION AGGRAVATED [None]
  - GRAND MAL CONVULSION [None]
  - HYPERTHERMIA [None]
  - INFLUENZA [None]
  - NEUROLOGICAL EXAMINATION ABNORMAL [None]
  - RENAL FAILURE ACUTE [None]
  - STATUS EPILEPTICUS [None]
